FAERS Safety Report 6095596-0 (Version None)
Quarter: 2009Q1

REPORT INFORMATION
  Report Type: 
  Country: None (occurrence: None)
  Receive Date: 20090227
  Receipt Date: 20080502
  Transmission Date: 20090719
  Serious: No
  Sender: FDA-Public Use
  Company Number: A0726086A

PATIENT
  Age: 17 Year
  Sex: Male

DRUGS (1)
  1. LAMICTAL [Suspect]
     Indication: CYCLOTHYMIC DISORDER
     Dosage: 100MG PER DAY
     Route: 048

REACTIONS (3)
  - EPISTAXIS [None]
  - NAUSEA [None]
  - VOMITING [None]
